FAERS Safety Report 20585137 (Version 1)
Quarter: 2022Q1

REPORT INFORMATION
  Report Type: Spontaneous
  Country: CN (occurrence: CN)
  Receive Date: 20220311
  Receipt Date: 20220311
  Transmission Date: 20220424
  Serious: Yes (Other)
  Sender: FDA-Public Use
  Company Number: CN-BAXTER-2022BAX005120

PATIENT
  Age: 33 Year
  Sex: Male
  Weight: 69 kg

DRUGS (16)
  1. CYCLOPHOSPHAMIDE [Suspect]
     Active Substance: CYCLOPHOSPHAMIDE
     Indication: Acute lymphocytic leukaemia
     Dosage: CYCLOPHOSPHAMIDE FOR INJECTION (1000 MG) + 0.9% SODIUM CHLORIDE INJECTION (500 ML)
     Route: 042
     Dates: start: 20220101, end: 20220101
  2. CYCLOPHOSPHAMIDE [Suspect]
     Active Substance: CYCLOPHOSPHAMIDE
     Dosage: CYCLOPHOSPHAMIDE FOR INJECTION + 0.9% SODIUM CHLORIDE INJECTION, DOSE RE-INTRODUCED
     Route: 042
  3. SODIUM CHLORIDE [Suspect]
     Active Substance: SODIUM CHLORIDE
     Indication: Medication dilution
     Dosage: 0.9% SODIUM CHLORIDE INJECTION 500 ML + CYCLOPHOSPHAMIDE FOR INJECTION 1000 MG INTRAVENOUS ONCE
     Route: 042
     Dates: start: 20220101, end: 20220101
  4. SODIUM CHLORIDE [Suspect]
     Active Substance: SODIUM CHLORIDE
     Dosage: DOSE RE-INTRODUCED, 0.9% NS  + CYCLOPHOSPHAMIDE FOR INJECTION INTRAVENOUS ONCE
     Route: 042
  5. SODIUM CHLORIDE [Suspect]
     Active Substance: SODIUM CHLORIDE
     Dosage: SODIUM CHLORIDE INJECTION 90 ML+ PEGASPARGASE INJECTION 3750 IU INTRAMUSCULAR ONCE
     Route: 030
     Dates: start: 20220101, end: 20220106
  6. SODIUM CHLORIDE [Suspect]
     Active Substance: SODIUM CHLORIDE
     Dosage: DOSE RE-INTRODUCED, SODIUM CHLORIDE INJECTION + PEGASPARGASE INJECTION (IM) ONCE
     Route: 030
  7. SODIUM CHLORIDE [Suspect]
     Active Substance: SODIUM CHLORIDE
     Dosage: 0.9% NS INJECTION 250 ML + DAUNORUBICIN HYDROCHLORIDE FOR INJECTION 60 MG INTRAVENOUS ONCE,
     Route: 042
     Dates: start: 20220101, end: 20220101
  8. SODIUM CHLORIDE [Suspect]
     Active Substance: SODIUM CHLORIDE
     Dosage: DAUNORUBICIN HYDROCHLORIDE + 0.9% SODIUM CHLORIDE, DOSE RE-INTRODUCED
     Route: 042
  9. SODIUM CHLORIDE [Suspect]
     Active Substance: SODIUM CHLORIDE
     Dosage: VINCRISTINE SULFATE FOR INJECTION 2 MG + 0.9% SODIUM CHLORIDE INJECTION 50 ML INTRAVENOUS ONCE
     Route: 042
     Dates: start: 20220101, end: 20220101
  10. SODIUM CHLORIDE [Suspect]
     Active Substance: SODIUM CHLORIDE
     Dosage: VINCRISTINE SULFATE FOR INJECTION + 0.9% SODIUM CHLORIDE, DOSE RE-INTRODUCED
     Route: 042
  11. PEGASPARGASE [Suspect]
     Active Substance: PEGASPARGASE
     Indication: Acute lymphocytic leukaemia
     Dosage: PEGASPARGASE INJECTION (3750 IU) + 0.9% SODIUM CHLORIDE INJECTION (90 MG)
     Route: 030
     Dates: start: 20220101, end: 20220106
  12. PEGASPARGASE [Suspect]
     Active Substance: PEGASPARGASE
     Dosage: PEGASPARGASE INJECTION  +  SODIUM CHLORIDE INJECTION, DOSE RE-INTRODUCED
     Route: 030
  13. DAUNORUBICIN HYDROCHLORIDE [Suspect]
     Active Substance: DAUNORUBICIN HYDROCHLORIDE
     Indication: Acute lymphocytic leukaemia
     Dosage: DAUNORUBICIN HYDROCHLORIDE (60 MG) + 0.9% SODIUM CHLORIDE INJECTION (250 ML)
     Route: 042
     Dates: start: 20220101, end: 20220101
  14. DAUNORUBICIN HYDROCHLORIDE [Suspect]
     Active Substance: DAUNORUBICIN HYDROCHLORIDE
     Dosage: DAUNORUBICIN HYDROCHLORIDE + 0.9% SODIUM CHLORIDE INJECTION DOSE RE-INTRODUCED
     Route: 042
  15. VINCRISTINE SULFATE [Suspect]
     Active Substance: VINCRISTINE SULFATE
     Indication: Acute lymphocytic leukaemia
     Dosage: VINCRISTINE SULFATE (2 MG) + 0.9% SODIUM CHLORIDE INJECTION (50 ML)
     Route: 042
     Dates: start: 20220101, end: 20220101
  16. VINCRISTINE SULFATE [Suspect]
     Active Substance: VINCRISTINE SULFATE
     Dosage: VINCRISTINE SULFATE + 0.9% SODIUM CHLORIDE (DOSE RE-INTRODUCED)
     Route: 042

REACTIONS (2)
  - Myelosuppression [Recovering/Resolving]
  - Platelet count decreased [Recovering/Resolving]

NARRATIVE: CASE EVENT DATE: 20220113
